FAERS Safety Report 13993949 (Version 1)
Quarter: 2017Q3

REPORT INFORMATION
  Report Type: Spontaneous
  Country: FR (occurrence: FR)
  Receive Date: 20170916
  Receipt Date: 20170916
  Transmission Date: 20171128
  Serious: Yes (Other)
  Sender: FDA-Public Use
  Company Number: FR-MERCK KGAA-2026602

PATIENT
  Age: 24 Month
  Sex: Female
  Weight: 11 kg

DRUGS (1)
  1. NOVOTHYROX [Suspect]
     Active Substance: LEVOTHYROXINE SODIUM
     Indication: HORMONE REPLACEMENT THERAPY
     Route: 048
     Dates: start: 20170515

REACTIONS (2)
  - Blood thyroid stimulating hormone increased [Unknown]
  - Alopecia [Unknown]

NARRATIVE: CASE EVENT DATE: 20170821
